FAERS Safety Report 5879212-6 (Version None)
Quarter: 2008Q3

REPORT INFORMATION
  Report Type: 
  Country: None (occurrence: None)
  Receive Date: 20080911
  Receipt Date: 20080911
  Transmission Date: 20090109
  Serious: Yes (Other)
  Sender: FDA-Public Use
  Company Number: None

PATIENT
  Age: 54 Year
  Sex: Male
  Weight: 57.6068 kg

DRUGS (6)
  1. ATAZANAVIR SULFATE [Suspect]
     Indication: HIV INFECTION
     Dosage: 300 MG DAILY PO
     Route: 048
  2. NORVIR [Concomitant]
  3. FUZEON [Concomitant]
  4. VIREAD [Concomitant]
  5. METOPROLOL TARTRATE [Concomitant]
  6. PRAVASTATIN [Concomitant]

REACTIONS (1)
  - NEPHROLITHIASIS [None]
